FAERS Safety Report 19092175 (Version 1)
Quarter: 2021Q2

REPORT INFORMATION
  Report Type: Spontaneous
  Country: DE (occurrence: DE)
  Receive Date: 20210405
  Receipt Date: 20210405
  Transmission Date: 20210717
  Serious: Yes (Life-Threatening, Hospitalization)
  Sender: FDA-Public Use
  Company Number: DE-ACCORD-221858

PATIENT
  Age: 63 Year
  Sex: Male
  Weight: 80 kg

DRUGS (10)
  1. ELIQUIS [Concomitant]
     Active Substance: APIXABAN
     Dosage: 1?0?1?0, TABLETS
     Route: 048
  2. RAMIPRIL. [Suspect]
     Active Substance: RAMIPRIL
     Indication: PRODUCT USED FOR UNKNOWN INDICATION
     Dosage: 2.5 MG, 1?0?0?0, TABLETS
     Route: 048
  3. TORASEMIDE [Suspect]
     Active Substance: TORSEMIDE
     Indication: PRODUCT USED FOR UNKNOWN INDICATION
     Dosage: 5 MG, 1?1?0?0, TABLETS
     Route: 048
  4. BISOPROLOL [Suspect]
     Active Substance: BISOPROLOL
     Indication: PRODUCT USED FOR UNKNOWN INDICATION
     Dosage: 5 MG, PAUSED, TABLETS
     Route: 048
  5. IPRATROPIUM BROMIDE/SALBUTAMOL [Concomitant]
     Active Substance: ALBUTEROL\IPRATROPIUM BROMIDE
     Dosage: 0.5, 2.5 MG, 1?1?1?0, SOLUTION FOR INHALATION
     Route: 055
  6. DIGITOXIN [Suspect]
     Active Substance: DIGITOXIN
     Indication: PRODUCT USED FOR UNKNOWN INDICATION
     Dosage: 0.07 MG, 1?0?0?0, TABLETS
     Route: 048
  7. CLINDAMYCIN. [Suspect]
     Active Substance: CLINDAMYCIN
     Indication: PRODUCT USED FOR UNKNOWN INDICATION
     Dosage: 600 MG, 1?1?1?0
     Route: 048
  8. BACLOFEN. [Concomitant]
     Active Substance: BACLOFEN
     Dosage: 10 MG, 1?0?1?0, TABLETS
     Route: 048
  9. CEFUROXIM [Concomitant]
     Active Substance: CEFUROXIME
     Dosage: 500 MG, 1?0?1?0
     Route: 048
  10. LEVETIRACETAM. [Concomitant]
     Active Substance: LEVETIRACETAM
     Dosage: 1?0?1?0, TABLETS
     Route: 048

REACTIONS (3)
  - Oliguria [Recovering/Resolving]
  - Bradycardia [Recovering/Resolving]
  - Pyrexia [Recovering/Resolving]
